FAERS Safety Report 4485192-0 (Version None)
Quarter: 2004Q4

REPORT INFORMATION
  Report Type: 
  Country: None (occurrence: None)
  Receive Date: 20041026
  Receipt Date: 20040326
  Transmission Date: 20050328
  Serious: No
  Sender: FDA-Public Use
  Company Number: US-BRISTOL-MYERS SQUIBB COMPANY-12543633

PATIENT
  Age: 62 Year
  Sex: Female
  Weight: 109 kg

DRUGS (8)
  1. GLUCOPHAGE XR [Suspect]
     Indication: DIABETES MELLITUS
     Route: 048
  2. ALTACE [Concomitant]
     Indication: PROPHYLAXIS
  3. TOPROL-XL [Concomitant]
     Indication: PROPHYLAXIS
  4. HUMALOG [Concomitant]
     Dosage: HUMALOG 75/25: 35 UNITS IN THE MORNING AND 45 UNITS IN EVENING
  5. ALBUTEROL [Concomitant]
     Indication: ASTHMA
  6. ADVAIR DISKUS 100/50 [Concomitant]
     Indication: ASTHMA
  7. KLONOPIN [Concomitant]
     Indication: INSOMNIA
  8. ZOLOFT [Concomitant]
     Indication: DEPRESSION

REACTIONS (2)
  - DIZZINESS [None]
  - HEADACHE [None]
